FAERS Safety Report 17171987 (Version 1)
Quarter: 2019Q4

REPORT INFORMATION
  Report Type: Spontaneous
  Country: HR (occurrence: HR)
  Receive Date: 20191218
  Receipt Date: 20191218
  Transmission Date: 20200122
  Serious: Yes (Other)
  Sender: FDA-Public Use
  Company Number: HR-ANIPHARMA-2019-HR-000013

PATIENT
  Age: 53 Year
  Sex: Female

DRUGS (2)
  1. RIBOCICLIB. [Suspect]
     Active Substance: RIBOCICLIB
     Dosage: CYCLE 2 / DOSE TEXT: 200 MG, CYCLE 6 / DOSE TEXT: CYCLE 3 / DOSE TEXT: CYCLE 1 / DOSE TEXT: 400 MG,
     Route: 065
  2. ANASTROZOLE. [Suspect]
     Active Substance: ANASTROZOLE
     Indication: BREAST CANCER
     Dosage: UNK
     Route: 048
     Dates: start: 20181218

REACTIONS (13)
  - Fatigue [Unknown]
  - Blood alkaline phosphatase increased [Unknown]
  - Back pain [Unknown]
  - Pleural effusion [Unknown]
  - Malignant neoplasm progression [Unknown]
  - Neutropenia [Unknown]
  - Metastases to lung [Unknown]
  - Inappropriate schedule of product administration [Unknown]
  - Anaemia [Recovered/Resolved]
  - Musculoskeletal pain [Unknown]
  - Metastases to lymph nodes [Unknown]
  - Blood lactate dehydrogenase increased [Unknown]
  - Breast cancer [Unknown]
